FAERS Safety Report 9499946 (Version 1)
Quarter: 2013Q1

REPORT INFORMATION
  Report Type: Spontaneous
  Country: US (occurrence: None)
  Receive Date: 20130129
  Receipt Date: 20130129
  Transmission Date: 20140127
  Serious: Yes (Other)
  Sender: FDA-Public Use
  Company Number: IMP_06058_2012

PATIENT
  Sex: Female

DRUGS (1)
  1. BUPROPION HYDROCHLORIDE [Suspect]
     Indication: PRODUCT USED FOR UNKNOWN INDICATION
     Dosage: 150 MG, BID, 2 DAYS A WEEK ORAL
     Route: 048
     Dates: end: 2012

REACTIONS (6)
  - Cardiomyopathy [None]
  - Palpitations [None]
  - Insomnia [None]
  - Decreased appetite [None]
  - Weight decreased [None]
  - Anxiety [None]
